FAERS Safety Report 15814499 (Version 1)
Quarter: 2019Q1

REPORT INFORMATION
  Report Type: Report from Study
  Country: MX (occurrence: MX)
  Receive Date: 20190111
  Receipt Date: 20190111
  Transmission Date: 20190417
  Serious: Yes (Death, Other)
  Sender: FDA-Public Use
  Company Number: PHHY2019MX004739

PATIENT
  Age: 88 Year
  Sex: Male
  Weight: 65 kg

DRUGS (1)
  1. EXFORGE [Suspect]
     Active Substance: AMLODIPINE BESYLATE\VALSARTAN
     Indication: HYPERTENSION
     Dosage: 1 DF, QD
     Route: 048

REACTIONS (2)
  - Death [Fatal]
  - Prostate cancer [Unknown]

NARRATIVE: CASE EVENT DATE: 20180729
